FAERS Safety Report 8111883 (Version 2)
Quarter: 2013Q3

REPORT INFORMATION
  Report Type: Spontaneous
  Country: US (occurrence: US)
  Receive Date: 20110829
  Receipt Date: 20130702
  Transmission Date: 20140515
  Serious: Yes (Life-Threatening, Hospitalization, Other)
  Sender: FDA-Public Use
  Company Number: US-BAYER-2011-077958

PATIENT
  Age: 38 Year
  Sex: Female

DRUGS (8)
  1. YAZ [Suspect]
  2. YASMIN [Suspect]
  3. OCELLA [Suspect]
  4. ACETAMINOPHEN W/OXYCODONE [Concomitant]
     Dosage: UNK
     Dates: start: 20090911
  5. PROAIR HFA [Concomitant]
     Dosage: UNK
     Dates: start: 20090613
  6. MULTIVITAMIN [Concomitant]
     Dosage: UNK
     Dates: start: 20090911
  7. LEVOXYL [Concomitant]
  8. ATIVAN [Concomitant]

REACTIONS (7)
  - Pulmonary embolism [None]
  - Thrombosis [None]
  - Anxiety [None]
  - Anhedonia [None]
  - Injury [None]
  - Pain [None]
  - Pulmonary embolism [None]
